FAERS Safety Report 14418481 (Version 1)
Quarter: 2018Q1

REPORT INFORMATION
  Report Type: Spontaneous
  Country: US (occurrence: US)
  Receive Date: 20180119
  Receipt Date: 20180119
  Transmission Date: 20180509
  Serious: Yes (Hospitalization, Disabling, Other)
  Sender: FDA-Public Use
  Company Number: None

PATIENT
  Age: 27 Year
  Sex: Female
  Weight: 56.25 kg

DRUGS (7)
  1. DULOXETINE. [Suspect]
     Active Substance: DULOXETINE
     Indication: DEPRESSION
     Dates: start: 20170628, end: 20171128
  2. VITAMIN B COMPLEX [Concomitant]
     Active Substance: CYANOCOBALAMIN\DEXPANTHENOL\NIACINAMIDE\PYRIDOXINE HYDROCHLORIDE\RIBOFLAVIN 5^-PHOSPHATE SODIUM\THIAMINE HYDROCHLORIDE\VITAMIN B COMPLEX
  3. FISH OIL [Concomitant]
     Active Substance: FISH OIL
  4. CANNABIS [Concomitant]
     Active Substance: CANNABIS SATIVA SUBSP. INDICA TOP
  5. DULOXETINE. [Suspect]
     Active Substance: DULOXETINE
     Indication: ANXIETY
     Dates: start: 20170628, end: 20171128
  6. DULOXETINE. [Suspect]
     Active Substance: DULOXETINE
     Indication: PAIN
     Dates: start: 20170628, end: 20171128
  7. KRATOM [Concomitant]
     Active Substance: MITRAGYNINE\HERBALS

REACTIONS (30)
  - Nausea [None]
  - Anxiety [None]
  - Vertigo [None]
  - Retching [None]
  - Urinary retention [None]
  - Faeces hard [None]
  - Abnormal dreams [None]
  - Insomnia [None]
  - Paranoia [None]
  - Hyperhidrosis [None]
  - Anal haemorrhage [None]
  - Nightmare [None]
  - Hyperacusis [None]
  - Tremor [None]
  - Constipation [None]
  - Anger [None]
  - Emotional disorder [None]
  - Dizziness [None]
  - Photophobia [None]
  - Withdrawal syndrome [None]
  - Fatigue [None]
  - Sleep paralysis [None]
  - Gastrointestinal inflammation [None]
  - Feeding disorder [None]
  - Decreased appetite [None]
  - Tension headache [None]
  - Depersonalisation/derealisation disorder [None]
  - Irritability [None]
  - Crying [None]
  - Mood swings [None]

NARRATIVE: CASE EVENT DATE: 20171204
